FAERS Safety Report 7400669-3 (Version None)
Quarter: 2011Q2

REPORT INFORMATION
  Report Type: 
  Country: None (occurrence: None)
  Receive Date: 20110407
  Receipt Date: 20110401
  Transmission Date: 20111010
  Serious: Yes (Hospitalization)
  Sender: FDA-Public Use
  Company Number: A0773227A

PATIENT
  Age: 41 Year
  Sex: Female
  Weight: 77.3 kg

DRUGS (23)
  1. ALPRAZOLAM [Concomitant]
  2. FLUOXETINE [Concomitant]
  3. LEXAPRO [Concomitant]
  4. ZOLOFT [Concomitant]
  5. NITROGLYCERIN [Concomitant]
  6. TOPROL-XL [Concomitant]
  7. DIAZEPAM [Concomitant]
  8. TRAZODONE HCL [Concomitant]
  9. BENICAR [Concomitant]
  10. GLYSET [Concomitant]
  11. PREDNISONE [Concomitant]
  12. METFORMIN HCL [Concomitant]
  13. WELLBUTRIN [Concomitant]
  14. TRAMADOL [Concomitant]
  15. GLUCOPHAGE [Concomitant]
  16. ZOCOR [Concomitant]
  17. HYDROCODONE [Concomitant]
  18. PRAVACHOL [Concomitant]
  19. AVANDIA [Suspect]
     Indication: DIABETES MELLITUS
     Dosage: 8MG PER DAY
     Route: 048
     Dates: start: 20040601, end: 20070201
  20. ACTOS [Concomitant]
  21. AMARYL [Concomitant]
  22. LORAZEPAM [Concomitant]
  23. DOXEPIN [Concomitant]

REACTIONS (6)
  - CARDIOMYOPATHY [None]
  - ARRHYTHMIA [None]
  - HYPERTENSIVE HEART DISEASE [None]
  - CARDIAC FAILURE CONGESTIVE [None]
  - LEFT VENTRICULAR DYSFUNCTION [None]
  - VENTRICULAR TACHYCARDIA [None]
